FAERS Safety Report 5210246-0 (Version None)
Quarter: 2007Q1

REPORT INFORMATION
  Report Type: 
  Country: None (occurrence: None)
  Receive Date: 20070112
  Receipt Date: 20070112
  Transmission Date: 20070707
  Serious: No
  Sender: FDA-Public Use
  Company Number: None

PATIENT
  Sex: Female
  Weight: 96.1626 kg

DRUGS (2)
  1. LEVAQUIN [Suspect]
     Indication: PYELONEPHRITIS
     Dosage: LEVAQUIN  750MG  ?    IV DRIP
     Route: 041
     Dates: start: 20061015, end: 20061018
  2. LEVAQUIN [Suspect]
     Dosage: LEVAQUIN   500MG  PO   ONE DAILY PO
     Route: 048
     Dates: start: 20061018, end: 20061024

REACTIONS (9)
  - ARTHRITIS [None]
  - ASTHENIA [None]
  - COGNITIVE DISORDER [None]
  - EMOTIONAL DISORDER [None]
  - FALL [None]
  - IMPAIRED WORK ABILITY [None]
  - MEMORY IMPAIRMENT [None]
  - NEURALGIA [None]
  - TENDONITIS [None]
